FAERS Safety Report 9409909 (Version 1)
Quarter: 2013Q3

REPORT INFORMATION
  Report Type: Spontaneous
  Country: US (occurrence: US)
  Receive Date: 20130719
  Receipt Date: 20130719
  Transmission Date: 20140515
  Serious: No
  Sender: FDA-Public Use
  Company Number: US-009507513-1307USA005482

PATIENT
  Sex: 0

DRUGS (2)
  1. SAPHRIS [Suspect]
     Dosage: 5 MG, HS
  2. SAPHRIS [Suspect]
     Dosage: 2.5 MG IN THE MORNING AND 2.5 MG IN THE NIGHT
     Dates: end: 2011

REACTIONS (5)
  - Appetite disorder [Unknown]
  - Tremor [Unknown]
  - Akathisia [Unknown]
  - Weight increased [Unknown]
  - Somnolence [Unknown]
